FAERS Safety Report 9128184 (Version 1)
Quarter: 2013Q1

REPORT INFORMATION
  Report Type: Spontaneous
  Country: US (occurrence: US)
  Receive Date: 20130125
  Receipt Date: 20130125
  Transmission Date: 20140127
  Serious: Yes (Disabling, Other)
  Sender: FDA-Public Use
  Company Number: PHEH2012US025132

PATIENT
  Age: 54 Year
  Sex: Male
  Weight: 166.6 kg

DRUGS (62)
  1. SANDOSTATIN LAR DEPOT [Suspect]
     Indication: CARCINOID TUMOUR
     Dosage: 40 MG, MONTHLY
     Route: 030
     Dates: start: 20100915
  2. SANDOSTATIN LAR DEPOT [Suspect]
     Dosage: 20 MG,EVERY 1 MINUTE
     Route: 030
     Dates: start: 20100920
  3. SANDOSTATIN LAR DEPOT [Suspect]
     Dosage: 30 MG, UNK
     Route: 030
     Dates: start: 20101013
  4. SANDOSTATIN LAR DEPOT [Suspect]
     Dosage: 20 MG, UNK
     Route: 030
     Dates: start: 20101110
  5. SANDOSTATIN LAR DEPOT [Suspect]
     Dosage: 30 MG, UNK
     Route: 030
     Dates: start: 20101208
  6. SANDOSTATIN LAR DEPOT [Suspect]
     Dosage: 30 MG, UNK
     Route: 030
     Dates: start: 20110105
  7. SANDOSTATIN LAR DEPOT [Suspect]
     Dosage: 30 MG, UNK
     Route: 030
     Dates: start: 20110203
  8. SANDOSTATIN LAR DEPOT [Suspect]
     Dosage: 30 MG, UNK
     Route: 030
     Dates: start: 20110222
  9. SANDOSTATIN LAR DEPOT [Suspect]
     Dosage: 30 MG, UNK
     Route: 030
     Dates: start: 20110316
  10. SANDOSTATIN LAR DEPOT [Suspect]
     Dosage: 30 MG, UNK
     Route: 030
     Dates: start: 20110406
  11. SANDOSTATIN LAR DEPOT [Suspect]
     Dosage: 30 MG, UNK
     Route: 030
     Dates: start: 20110427
  12. SANDOSTATIN LAR DEPOT [Suspect]
     Dosage: 30 MG, UNK
     Route: 030
     Dates: start: 20110518
  13. SANDOSTATIN LAR DEPOT [Suspect]
     Dosage: 30 MG, UNK
     Route: 030
     Dates: start: 20110608
  14. SANDOSTATIN LAR DEPOT [Suspect]
     Dosage: 30 MG, UNK
     Route: 030
     Dates: start: 20110629
  15. SANDOSTATIN LAR DEPOT [Suspect]
     Dosage: 30 MG, UNK
     Route: 030
     Dates: start: 20110721
  16. SANDOSTATIN LAR DEPOT [Suspect]
     Dosage: 30 MG, UNK
     Route: 030
     Dates: start: 20110831
  17. SANDOSTATIN LAR DEPOT [Suspect]
     Dosage: 30 MG, UNK
     Route: 030
     Dates: start: 20110921
  18. SANDOSTATIN LAR DEPOT [Suspect]
     Dosage: 40 MG, UNK
     Route: 030
     Dates: start: 20111012
  19. SANDOSTATIN LAR DEPOT [Suspect]
     Dosage: 40 MG, UNK
     Route: 030
     Dates: start: 20111102
  20. SANDOSTATIN LAR DEPOT [Suspect]
     Dosage: 40 MG, UNK
     Route: 030
     Dates: start: 20111123
  21. SANDOSTATIN LAR DEPOT [Suspect]
     Dosage: 40 MG, UNK
     Route: 030
     Dates: start: 20111214
  22. SANDOSTATIN LAR DEPOT [Suspect]
     Dosage: 40 MG, UNK
     Route: 030
     Dates: start: 20120104
  23. SANDOSTATIN LAR DEPOT [Suspect]
     Dosage: 40 MG, UNK
     Route: 030
     Dates: start: 20120125
  24. SANDOSTATIN LAR DEPOT [Suspect]
     Dosage: 40 MG, UNK
     Route: 030
     Dates: start: 20120215
  25. SANDOSTATIN LAR DEPOT [Suspect]
     Dosage: 40 MG, UNK
     Route: 030
     Dates: start: 20120308
  26. SANDOSTATIN LAR DEPOT [Suspect]
     Dosage: 40 MG, UNK
     Route: 030
     Dates: start: 20120328
  27. SANDOSTATIN LAR DEPOT [Suspect]
     Dosage: 40 MG, UNK
     Route: 030
     Dates: start: 20120418
  28. SANDOSTATIN LAR DEPOT [Suspect]
     Dosage: 40 MG, UNK
     Route: 030
     Dates: start: 20120509
  29. SANDOSTATIN LAR DEPOT [Suspect]
     Dosage: 40 MG, UNK
     Route: 030
     Dates: start: 20120530
  30. SANDOSTATIN LAR DEPOT [Suspect]
     Dosage: 40 MG, UNK
     Route: 030
     Dates: start: 20120620
  31. SANDOSTATIN LAR DEPOT [Suspect]
     Dosage: 40 MG, UNK
     Route: 030
     Dates: start: 20120711
  32. SANDOSTATIN LAR DEPOT [Suspect]
     Dosage: 40 MG, UNK
     Route: 030
     Dates: start: 20120801
  33. SANDOSTATIN LAR DEPOT [Suspect]
     Dosage: 40 MG, UNK
     Route: 030
     Dates: start: 20120822
  34. SANDOSTATIN LAR DEPOT [Suspect]
     Dosage: 40 MG, UNK
     Route: 030
     Dates: start: 20120912
  35. SANDOSTATIN LAR DEPOT [Suspect]
     Dosage: 40 MG, UNK
     Route: 030
     Dates: start: 20121003
  36. SANDOSTATIN LAR DEPOT [Suspect]
     Dosage: 40 MG, UNK
     Route: 030
     Dates: start: 20121024
  37. SANDOSTATIN LAR DEPOT [Suspect]
     Dosage: 40 MG, UNK
     Route: 030
     Dates: start: 20121205
  38. SANDOSTATIN LAR DEPOT [Suspect]
     Dosage: 40 MG, UNK
     Route: 030
     Dates: start: 20121226
  39. SANDOSTATIN [Concomitant]
     Dosage: 1 ML, EVERY 8 HOURS
     Route: 058
     Dates: start: 20121114
  40. OMEPRAZOLE [Concomitant]
     Dosage: 1 DF, TWICE A DAY
     Route: 048
     Dates: start: 20121114
  41. GLUCOPHAGE [Concomitant]
     Dosage: 1000 MG,TWICE A DAY
     Route: 048
  42. NORVASC [Concomitant]
     Dosage: 5 MG,EVERY DAY
     Route: 048
  43. NORVASC [Concomitant]
     Dosage: 10 MG, UNK
     Route: 048
     Dates: start: 20110105
  44. INDOMETHACIN [Concomitant]
     Dosage: 50 MG, TID,FOR 3 DOSES
     Route: 048
  45. INDOMETHACIN [Concomitant]
     Dosage: 1 DF, BID,FOR 2 DOSES
     Route: 048
  46. LEVOTHYROXINE [Concomitant]
     Dosage: 0.05 MG,EVERY DAY
     Route: 048
  47. LISINOPRIL [Concomitant]
     Dosage: 20 MG, EVERY DAY
     Route: 048
  48. TOPROL XL [Concomitant]
     Dosage: 50 MG,EVERY DAY
  49. EFFIENT [Concomitant]
     Dosage: 10 MG, EVERY DAY
  50. ASPIRIN [Concomitant]
     Dosage: 325 MG, EVERY DAY
     Route: 048
  51. IMODIUM [Concomitant]
     Dosage: 2 DF, AS NEEDED
     Route: 048
     Dates: start: 20100908, end: 20101108
  52. OMEGA-3 FATTY ACIDS [Concomitant]
     Dosage: 1000 MG, TWICE A DAY
     Route: 048
     Dates: start: 20100915
  53. TOCOPHEROL [Concomitant]
     Dosage: 1000 MG, UNK
     Route: 048
     Dates: start: 20100915
  54. B COMPLEX [Concomitant]
     Dosage: 1 DF,EVERY DAY
     Route: 048
     Dates: start: 20100915
  55. CHELATED ZINC//ZINC [Concomitant]
     Dosage: 50 MG, EVERY DAY
     Route: 048
     Dates: start: 20100915
  56. DIFLUCAN [Concomitant]
     Dosage: 150 MG, EVERY DAY
     Route: 048
     Dates: start: 20100930
  57. AMBIEN [Concomitant]
     Dosage: 10 MG, EVERY DAY BEFORE SLEEP
     Dates: start: 20110608
  58. FUROSEMIDE [Concomitant]
     Dosage: 40 MG, EVERY DAY
     Route: 048
     Dates: start: 20120620
  59. CRESTOR [Concomitant]
     Dosage: 10 MG,EVERY DAY
     Route: 048
     Dates: start: 20120620
  60. POTASSIUM CHLORIDE [Concomitant]
     Dosage: 20 MEQ, EVERY DAY
     Route: 048
  61. FLUVIRIN [Concomitant]
     Dosage: 0.5 ML, UNK
     Dates: start: 20110921
  62. FLUVIRIN [Concomitant]
     Dosage: 0.5 ML, UNK
     Dates: start: 20121003

REACTIONS (3)
  - Tooth fracture [Unknown]
  - Blood pressure increased [Unknown]
  - White blood cell count increased [Unknown]
